FAERS Safety Report 15461572 (Version 1)
Quarter: 2018Q4

REPORT INFORMATION
  Report Type: Report from Study
  Country: FR (occurrence: FR)
  Receive Date: 20181003
  Receipt Date: 20181003
  Transmission Date: 20190204
  Serious: Yes (Hospitalization, Other)
  Sender: FDA-Public Use
  Company Number: FR-SHIRE-FR201837404

PATIENT

DRUGS (35)
  1. ZOPHREN [Concomitant]
     Active Substance: ONDANSETRON
     Indication: NAUSEA
  2. FASTURTEC [Concomitant]
     Active Substance: RASBURICASE
     Indication: PROPHYLAXIS
  3. ZYLORIC [Concomitant]
     Active Substance: ALLOPURINOL
     Indication: TUMOUR LYSIS SYNDROME
  4. SPASFON (PHLOROGLUCINOL\TRIMETHYLPHLOROGLUCINOL) [Concomitant]
     Active Substance: PHLOROGLUCINOL\1,3,5-TRIMETHOXYBENZENE
     Indication: ABDOMINAL PAIN
  5. ACLOTINE [Concomitant]
     Active Substance: ANTITHROMBIN III HUMAN
     Indication: ANTITHROMBIN III DEFICIENCY
  6. LOXEN (NICARDIPINE HYDROCHLORIDE) [Concomitant]
     Active Substance: NICARDIPINE HYDROCHLORIDE
     Indication: HYPERTENSION
  7. CALCIDOSE [Concomitant]
     Active Substance: CALCIUM CARBONATE
     Indication: BONE DISORDER
  8. AMIKLIN [Concomitant]
     Active Substance: AMIKACIN SULFATE
     Indication: SEPSIS
  9. PARACETAMOL [Concomitant]
     Active Substance: ACETAMINOPHEN
     Indication: PAIN
  10. FASTURTEC [Concomitant]
     Active Substance: RASBURICASE
     Indication: TUMOUR LYSIS SYNDROME
  11. CALCIDOSE [Concomitant]
     Active Substance: CALCIUM CARBONATE
     Indication: PROPHYLAXIS
  12. MOPRAL [Concomitant]
     Active Substance: OMEPRAZOLE
     Indication: GASTRITIS
  13. CHOLURSO [Concomitant]
     Active Substance: URSODIOL
     Indication: HEPATIC CONGESTION
  14. CYCLOPHOSPHAMIDE. [Suspect]
     Active Substance: CYCLOPHOSPHAMIDE
     Indication: ACUTE LYMPHOCYTIC LEUKAEMIA
     Dosage: 1130 MG, 1X/DAY:QD
     Route: 042
     Dates: start: 20180618, end: 20180716
  15. CYTARABINE. [Suspect]
     Active Substance: CYTARABINE
     Indication: ACUTE LYMPHOCYTIC LEUKAEMIA
     Dosage: 85.5 MG, 1X/DAY:QD
     Route: 042
     Dates: start: 20180620, end: 20180728
  16. METHOTREXATE. [Suspect]
     Active Substance: METHOTREXATE
     Indication: ACUTE LYMPHOCYTIC LEUKAEMIA
     Dosage: 15 MG, 1X/DAY:QD
     Route: 037
     Dates: start: 20180620, end: 20180802
  17. HYDROCORTISONE. [Suspect]
     Active Substance: HYDROCORTISONE
     Indication: ACUTE LYMPHOCYTIC LEUKAEMIA
     Dosage: 15 MG, 1X/DAY:QD
     Route: 037
     Dates: start: 20180620, end: 20180802
  18. ZOPHREN [Concomitant]
     Active Substance: ONDANSETRON
     Indication: VOMITING
  19. PEGASPARGASE [Suspect]
     Active Substance: PEGASPARGASE
     Indication: ACUTE LYMPHOCYTIC LEUKAEMIA
     Dosage: 2800 IU, 1X/DAY:QD
     Route: 042
     Dates: start: 20180702
  20. LASILIX [Concomitant]
     Active Substance: FUROSEMIDE
     Indication: POLYURIA
  21. LEDERFOLINE [Concomitant]
     Active Substance: LEUCOVORIN CALCIUM
     Indication: PRODUCT USED FOR UNKNOWN INDICATION
  22. AMBISOME [Concomitant]
     Active Substance: AMPHOTERICIN B
     Indication: ANTIFUNGAL PROPHYLAXIS
  23. BACTRIM [Concomitant]
     Active Substance: SULFAMETHOXAZOLE\TRIMETHOPRIM
     Indication: ANTIFUNGAL PROPHYLAXIS
  24. CYTARABINE. [Suspect]
     Active Substance: CYTARABINE
     Dosage: 30 MG, 1X/DAY:QD
     Route: 037
     Dates: start: 20180620, end: 20180802
  25. POLARAMINE [Concomitant]
     Active Substance: DEXCHLORPHENIRAMINE MALEATE
     Indication: PRODUCT USED FOR UNKNOWN INDICATION
  26. UVEDOSE [Concomitant]
     Active Substance: CHOLECALCIFEROL
     Indication: PROPHYLAXIS
  27. NUBAIN [Concomitant]
     Active Substance: NALBUPHINE HYDROCHLORIDE
     Indication: PAIN
  28. VINCRISTINE [Suspect]
     Active Substance: VINCRISTINE
     Indication: ACUTE LYMPHOCYTIC LEUKAEMIA
     Dosage: 1.7 MG, 1X/DAY:QD
     Route: 042
     Dates: start: 20180702, end: 20180806
  29. 6-MERCAPTOPURINE MONOHYDRATE [Suspect]
     Active Substance: MERCAPTOPURINE
     Indication: ACUTE LYMPHOCYTIC LEUKAEMIA
     Dosage: 53 MG, 1X/DAY:QD
     Route: 048
     Dates: start: 20180618, end: 20180729
  30. ZYLORIC [Concomitant]
     Active Substance: ALLOPURINOL
     Indication: PROPHYLAXIS
  31. AMBISOME [Concomitant]
     Active Substance: AMPHOTERICIN B
     Indication: SEPSIS
  32. ATARAX [Concomitant]
     Active Substance: HYDROXYZINE HYDROCHLORIDE
     Indication: SLEEP DISORDER
  33. RIVOTRIL [Concomitant]
     Active Substance: CLONAZEPAM
     Indication: PAIN
  34. TAZOCILLINE [Concomitant]
     Active Substance: PIPERACILLIN SODIUM\TAZOBACTAM SODIUM
     Indication: SEPSIS
  35. VANCOMYCIN [Concomitant]
     Active Substance: VANCOMYCIN
     Indication: SEPSIS

REACTIONS (1)
  - Escherichia sepsis [Recovered/Resolved]

NARRATIVE: CASE EVENT DATE: 20180809
